FAERS Safety Report 20963849 (Version 4)
Quarter: 2023Q2

REPORT INFORMATION
  Report Type: Report from Study
  Country: CN (occurrence: CN)
  Receive Date: 20220615
  Receipt Date: 20230407
  Transmission Date: 20230722
  Serious: Yes (Death, Hospitalization)
  Sender: FDA-Public Use
  Company Number: CN-NOVARTISPH-NVSC2022CN137048

PATIENT
  Age: 74 Year
  Sex: Female
  Weight: 71 kg

DRUGS (12)
  1. FEMARA [Suspect]
     Active Substance: LETROZOLE
     Indication: Breast cancer
     Dosage: 2.5 MG, QD
     Route: 048
     Dates: start: 20151013, end: 20211025
  2. FEMARA [Suspect]
     Active Substance: LETROZOLE
     Dosage: 2.5 MG, QD
     Route: 048
     Dates: start: 20151015, end: 20211025
  3. PALBOCICLIB [Suspect]
     Active Substance: PALBOCICLIB
     Indication: Breast cancer
     Dosage: UNK, QD
     Route: 048
     Dates: start: 20151013, end: 20211025
  4. VALSARTAN [Concomitant]
     Active Substance: VALSARTAN
     Indication: Product used for unknown indication
     Dosage: UNK
     Route: 065
     Dates: start: 202103
  5. NICARDIPINE ^RATIOPHARM^ [Concomitant]
     Indication: Product used for unknown indication
     Dosage: UNK, QD
     Route: 042
  6. SODIUM CHLORIDE [Concomitant]
     Active Substance: SODIUM CHLORIDE
     Indication: Product used for unknown indication
     Dosage: 250 ML, BID
     Route: 065
  7. AMINOACETIC ACID [Concomitant]
     Active Substance: GLYCINE
     Indication: Product used for unknown indication
     Dosage: 4 G, BID
     Route: 042
  8. AMINOACETIC ACID [Concomitant]
     Active Substance: GLYCINE
     Dosage: 250 ML, BID
     Route: 042
  9. VALPROATE SODIUM [Concomitant]
     Active Substance: VALPROATE SODIUM
     Indication: Product used for unknown indication
     Dosage: 200 MG
     Route: 042
  10. AMOXICILLIN SODIUM [Concomitant]
     Active Substance: AMOXICILLIN SODIUM
     Indication: Product used for unknown indication
     Dosage: 8 G, BID
     Route: 042
  11. AMBROXOL [Concomitant]
     Active Substance: AMBROXOL
     Indication: Product used for unknown indication
     Dosage: 150 MG, BID
     Route: 065
  12. DOPAMINE HYDROCHLORIDE [Concomitant]
     Active Substance: DOPAMINE HYDROCHLORIDE
     Indication: Product used for unknown indication
     Dosage: 200 MG, BID
     Route: 042
     Dates: start: 20211030

REACTIONS (3)
  - Cerebral haemorrhage [Fatal]
  - Blood pressure inadequately controlled [Unknown]
  - Memory impairment [Unknown]

NARRATIVE: CASE EVENT DATE: 20211028
